FAERS Safety Report 19507779 (Version 3)
Quarter: 2021Q3

REPORT INFORMATION
  Report Type: Report from Study
  Country: MX (occurrence: MX)
  Receive Date: 20210708
  Receipt Date: 20210728
  Transmission Date: 20211014
  Serious: Yes (Other)
  Sender: FDA-Public Use
  Company Number: NVSC2021MX069623

PATIENT
  Age: 71 Year
  Sex: Female
  Weight: 52 kg

DRUGS (6)
  1. TRAVATAN [Suspect]
     Active Substance: TRAVOPROST
     Indication: PRODUCT USED FOR UNKNOWN INDICATION
     Dosage: UNK, 1 IN EACH EYE
     Route: 047
  2. DAFLON [Concomitant]
     Indication: VARICOSE VEIN
     Dosage: 1 DF, QD
     Route: 048
  3. DIOVAN [Suspect]
     Active Substance: VALSARTAN
     Indication: HYPERTENSION
     Dosage: 0.5 DF, QD
     Route: 048
     Dates: start: 20201014
  4. DIOVAN [Suspect]
     Active Substance: VALSARTAN
     Dosage: 0.5 DF, QD
     Route: 048
     Dates: start: 20201015
  5. DIOVAN [Suspect]
     Active Substance: VALSARTAN
     Dosage: 0.5 DF, QD
     Route: 048
     Dates: start: 202010
  6. DIOVAN [Suspect]
     Active Substance: VALSARTAN
     Dosage: 0.5 DF, QD
     Route: 048
     Dates: start: 202012

REACTIONS (23)
  - Dizziness [Unknown]
  - Off label use [Unknown]
  - Malnutrition [Not Recovered/Not Resolved]
  - Asthenia [Unknown]
  - Weight decreased [Not Recovered/Not Resolved]
  - Blood pressure increased [Unknown]
  - Vertigo [Unknown]
  - Abdominal distension [Unknown]
  - Muscular weakness [Unknown]
  - Constipation [Recovering/Resolving]
  - Urinary tract infection [Unknown]
  - Hypersensitivity [Unknown]
  - Anxiety [Unknown]
  - Balance disorder [Unknown]
  - Tinnitus [Unknown]
  - Stress [Unknown]
  - Insomnia [Unknown]
  - Decreased appetite [Unknown]
  - Gastritis [Unknown]
  - Headache [Unknown]
  - Herpes simplex [Unknown]
  - Colitis [Unknown]
  - Nausea [Unknown]

NARRATIVE: CASE EVENT DATE: 202010
